FAERS Safety Report 4521731-9 (Version None)
Quarter: 2004Q4

REPORT INFORMATION
  Report Type: 
  Country: None (occurrence: None)
  Receive Date: 20041206
  Receipt Date: 20041129
  Transmission Date: 20050328
  Serious: Yes (Hospitalization, Other)
  Sender: FDA-Public Use
  Company Number: 2003-06-1912

PATIENT
  Age: 51 Year
  Sex: Male

DRUGS (2)
  1. INTRON A [Suspect]
     Indication: HEPATITIS C
     Dosage: 6 MU 6X/WK INTRAMUSCULAR
     Route: 030
     Dates: start: 20030605, end: 20030610
  2. REBETOL [Suspect]

REACTIONS (1)
  - DRUG ERUPTION [None]
